FAERS Safety Report 22592386 (Version 4)
Quarter: 2023Q2

REPORT INFORMATION
  Report Type: Report from Study
  Country: US (occurrence: US)
  Receive Date: 20230613
  Receipt Date: 20230626
  Transmission Date: 20230721
  Serious: No
  Sender: FDA-Public Use
  Company Number: US-002147023-NVSC2023US130444

PATIENT
  Sex: Male
  Weight: 105.21 kg

DRUGS (8)
  1. BETAMETHASONE [Suspect]
     Active Substance: BETAMETHASONE
     Indication: Psoriasis
     Dosage: UNK (LOTION, BETAMETHASONE DIPROPIONATE)
     Route: 065
  2. CLOBETASOL [Suspect]
     Active Substance: CLOBETASOL
     Indication: Psoriasis
     Dosage: UNK(0.05 %CLOBETASOL PROPIONATE)
     Route: 065
  3. CLOBETASOL [Suspect]
     Active Substance: CLOBETASOL
     Dosage: UNK (0.05 % FOAM)
     Route: 065
  4. CLOBETASOL [Suspect]
     Active Substance: CLOBETASOL
     Dosage: UNK(0.05%,LOTION,CLOBETASOL PROPIONATE)
     Route: 065
  5. CLOBETASOL [Suspect]
     Active Substance: CLOBETASOL
     Dosage: UNK (SHAMPOO 0.05%)
     Route: 065
  6. CALCIPOTRIENE [Suspect]
     Active Substance: CALCIPOTRIENE
     Indication: Psoriasis
     Dosage: UNK
     Route: 065
  7. TRIAMCINOLONE [Suspect]
     Active Substance: TRIAMCINOLONE
     Indication: Psoriasis
     Dosage: UNK (TRIAMCINOLONE ACETONIDE)
     Route: 065
  8. OLUX [Suspect]
     Active Substance: CLOBETASOL PROPIONATE
     Indication: Psoriasis
     Dosage: UNK, (FOAM)
     Route: 065

REACTIONS (5)
  - Psoriasis [Recovering/Resolving]
  - Arthritis [Unknown]
  - Rash [Unknown]
  - Arthralgia [Not Recovered/Not Resolved]
  - Drug ineffective [Unknown]
